FAERS Safety Report 6620601-X (Version None)
Quarter: 2010Q1

REPORT INFORMATION
  Report Type: 
  Country: None (occurrence: None)
  Receive Date: 20100309
  Receipt Date: 20100302
  Transmission Date: 20100710
  Serious: Yes (Other)
  Sender: FDA-Public Use
  Company Number: US-JNJFOC-20100301133

PATIENT
  Age: 21 Year
  Sex: Female
  Weight: 63.5 kg

DRUGS (3)
  1. TYLENOL-500 [Suspect]
     Route: 048
  2. TYLENOL-500 [Suspect]
     Indication: DRUG USE FOR UNKNOWN INDICATION
     Route: 048
  3. MOTRIN IB [Concomitant]
     Indication: HEADACHE

REACTIONS (2)
  - APHONIA [None]
  - HYPERSENSITIVITY [None]
